FAERS Safety Report 11831211 (Version 2)
Quarter: 2016Q1

REPORT INFORMATION
  Report Type: Spontaneous
  Country: US (occurrence: US)
  Receive Date: 20151214
  Receipt Date: 20160105
  Transmission Date: 20160525
  Serious: No
  Sender: FDA-Public Use
  Company Number: US-009507513-1512USA003792

PATIENT
  Age: 92 Year
  Sex: Female

DRUGS (1)
  1. BELSOMRA [Suspect]
     Active Substance: SUVOREXANT
     Indication: INSOMNIA
     Dosage: 10 MG
     Route: 048
     Dates: start: 20151202, end: 20151202

REACTIONS (6)
  - Limb discomfort [Unknown]
  - Paraesthesia [Unknown]
  - Diarrhoea [Unknown]
  - Muscle spasms [Unknown]
  - Cough [Unknown]
  - Drug ineffective [Unknown]

NARRATIVE: CASE EVENT DATE: 20151202
